FAERS Safety Report 8230879-7 (Version None)
Quarter: 2012Q1

REPORT INFORMATION
  Report Type: 
  Country: None (occurrence: None)
  Receive Date: 20120320
  Receipt Date: 20120307
  Transmission Date: 20120608
  Serious: Yes (Hospitalization)
  Sender: FDA-Public Use
  Company Number: ALK_02350_2012

PATIENT
  Age: 22 Year
  Sex: Male

DRUGS (1)
  1. VIVITROL [Suspect]
     Indication: DRUG DEPENDENCE
     Dosage: (INTRAMUSCULAR)
     Route: 030

REACTIONS (2)
  - MUSCLE SPASMS [None]
  - ASTHENIA [None]
